FAERS Safety Report 18927622 (Version 1)
Quarter: 2021Q1

REPORT INFORMATION
  Report Type: Spontaneous
  Country: US (occurrence: US)
  Receive Date: 20210223
  Receipt Date: 20210223
  Transmission Date: 20210420
  Serious: Yes (Other)
  Sender: FDA-Public Use
  Company Number: None

PATIENT
  Age: 39 Year
  Sex: Female
  Weight: 42.75 kg

DRUGS (3)
  1. ZYRTEC [Concomitant]
     Active Substance: CETIRIZINE HYDROCHLORIDE
  2. DEXTROAMPHET SACCHARAT, AMPHET ASPARTATE, DEXTROAMPHET SULFATE AND AMPHET SULFAT [Suspect]
     Active Substance: AMPHETAMINE ASPARTATE\AMPHETAMINE SULFATE\DEXTROAMPHETAMINE SACCHARATE\DEXTROAMPHETAMINE SULFATE
     Indication: ATTENTION DEFICIT HYPERACTIVITY DISORDER
     Dosage: QUANTITY:90 TABLET(S);?
     Route: 048
     Dates: start: 20210218, end: 20210222
  3. ADDEREALL [Concomitant]

REACTIONS (11)
  - Myalgia [None]
  - Morning sickness [None]
  - Irritability [None]
  - Nausea [None]
  - Feeling jittery [None]
  - Migraine [None]
  - Nervousness [None]
  - Depression [None]
  - Anxiety [None]
  - Hypersensitivity [None]
  - Body temperature increased [None]

NARRATIVE: CASE EVENT DATE: 20210218
